FAERS Safety Report 9914255 (Version 1)
Quarter: 2014Q1

REPORT INFORMATION
  Report Type: Spontaneous
  Country: GB (occurrence: GB)
  Receive Date: 20140220
  Receipt Date: 20140220
  Transmission Date: 20141002
  Serious: Yes (Hospitalization)
  Sender: FDA-Public Use
  Company Number: GB-BRISTOL-MYERS SQUIBB COMPANY-20184222

PATIENT
  Age: 62 Year
  Sex: Female
  Weight: 108 kg

DRUGS (8)
  1. FORXIGA [Suspect]
     Route: 048
     Dates: start: 20131202, end: 20140128
  2. LANSOPRAZOLE [Concomitant]
  3. PIRITON [Concomitant]
  4. DOSULEPIN [Concomitant]
  5. VITAMIN B COMPLEX [Concomitant]
  6. BUSCOPAN [Concomitant]
  7. NAFARELIN ACETATE [Concomitant]
  8. METFORMIN [Concomitant]

REACTIONS (3)
  - Blood ketone body present [Recovering/Resolving]
  - Hyperglycaemia [Recovering/Resolving]
  - Epistaxis [Unknown]
